FAERS Safety Report 22311939 (Version 1)
Quarter: 2023Q2

REPORT INFORMATION
  Report Type: Spontaneous
  Country: US (occurrence: None)
  Receive Date: 20230512
  Receipt Date: 20230512
  Transmission Date: 20230721
  Serious: No
  Sender: FDA-Public Use
  Company Number: 2023A108213

PATIENT
  Age: 72 Year
  Weight: 61.2 kg

DRUGS (6)
  1. PRILOSEC [Suspect]
     Active Substance: OMEPRAZOLE MAGNESIUM
     Indication: Abdominal pain upper
     Dosage: 20 MILLIGRAM, 12 /DAY
     Route: 048
     Dates: start: 20230405
  2. PRILOSEC [Suspect]
     Active Substance: OMEPRAZOLE MAGNESIUM
     Indication: Abdominal discomfort
     Dosage: 20 MILLIGRAM, 12 /DAY
     Route: 048
     Dates: start: 20230405
  3. PRILOSEC [Suspect]
     Active Substance: OMEPRAZOLE MAGNESIUM
     Indication: Abdominal pain upper
     Dosage: 20 MILLIGRAM, 12 /DAY
     Route: 048
     Dates: start: 20230406
  4. PRILOSEC [Suspect]
     Active Substance: OMEPRAZOLE MAGNESIUM
     Indication: Abdominal discomfort
     Dosage: 20 MILLIGRAM, 12 /DAY
     Route: 048
     Dates: start: 20230406
  5. PRILOSEC [Suspect]
     Active Substance: OMEPRAZOLE MAGNESIUM
     Indication: Abdominal pain upper
     Dosage: 20 MILLIGRAM, 12 /DAY
     Route: 048
     Dates: start: 20230407
  6. PRILOSEC [Suspect]
     Active Substance: OMEPRAZOLE MAGNESIUM
     Indication: Abdominal discomfort
     Dosage: 20 MILLIGRAM, 12 /DAY
     Route: 048
     Dates: start: 20230407

REACTIONS (2)
  - Hypersomnia [Unknown]
  - Overdose [Unknown]
